FAERS Safety Report 9004312 (Version 1)
Quarter: 2013Q1

REPORT INFORMATION
  Report Type: Spontaneous
  Country: US (occurrence: None)
  Receive Date: 20130104
  Receipt Date: 20130104
  Transmission Date: 20140127
  Serious: Yes (Hospitalization)
  Sender: FDA-Public Use
  Company Number: None

PATIENT
  Age: 49 Year
  Sex: Female

DRUGS (1)
  1. NERATINIB [Suspect]
     Indication: BREAST CANCER
     Dosage: 40MG QD PO
     Route: 048
     Dates: start: 20121107, end: 20121231

REACTIONS (3)
  - Muscular weakness [None]
  - Spinal cord compression [None]
  - Spinal deformity [None]
